FAERS Safety Report 12114955 (Version 6)
Quarter: 2019Q1

REPORT INFORMATION
  Report Type: Spontaneous
  Country: US (occurrence: US)
  Receive Date: 20160225
  Receipt Date: 20190107
  Transmission Date: 20190417
  Serious: Yes (Hospitalization, Other)
  Sender: FDA-Public Use
  Company Number: US-PFIZER INC-2016110846

PATIENT
  Age: 50 Year
  Sex: Female
  Weight: 63.5 kg

DRUGS (5)
  1. XALKORI [Suspect]
     Active Substance: CRIZOTINIB
     Dosage: 250 MG, UNK
     Dates: end: 201806
  2. XALKORI [Suspect]
     Active Substance: CRIZOTINIB
     Dosage: 250 MG, ONCE DAILY
     Route: 048
     Dates: start: 201710
  3. XALKORI [Suspect]
     Active Substance: CRIZOTINIB
     Dosage: 200 MG, UNK
  4. XALKORI [Suspect]
     Active Substance: CRIZOTINIB
     Indication: NON-SMALL CELL LUNG CANCER
     Dosage: 250 MG, TWICE DAILY
     Route: 048
     Dates: start: 201406
  5. XALKORI [Suspect]
     Active Substance: CRIZOTINIB
     Dosage: 250 MG, TWICE DAILY
     Route: 048
     Dates: start: 201405

REACTIONS (9)
  - Peripheral swelling [Recovering/Resolving]
  - Arthralgia [Unknown]
  - Neoplasm progression [Recovering/Resolving]
  - Body temperature abnormal [Unknown]
  - Joint swelling [Recovering/Resolving]
  - Lower respiratory tract infection [Recovering/Resolving]
  - Intentional product use issue [Unknown]
  - Product dose omission [Unknown]
  - Vomiting [Recovered/Resolved]

NARRATIVE: CASE EVENT DATE: 201710
